FAERS Safety Report 18226651 (Version 1)
Quarter: 2020Q3

REPORT INFORMATION
  Report Type: Spontaneous
  Country: US (occurrence: US)
  Receive Date: 20200903
  Receipt Date: 20200903
  Transmission Date: 20201103
  Serious: Yes (Hospitalization, Other)
  Sender: FDA-Public Use
  Company Number: US-NOVAST LABORATORIES LTD.-2020NOV000299

PATIENT
  Age: 35 Year
  Sex: Female

DRUGS (2)
  1. QUETIAPINE. [Suspect]
     Active Substance: QUETIAPINE
     Indication: INTENTIONAL OVERDOSE
     Dosage: 36 GRAM
     Route: 065
  2. LAMOTRIGINE. [Concomitant]
     Active Substance: LAMOTRIGINE
     Indication: PRODUCT USED FOR UNKNOWN INDICATION
     Dosage: UNK
     Route: 065

REACTIONS (7)
  - Intentional overdose [Unknown]
  - Circulatory collapse [Recovering/Resolving]
  - Hypoxia [Recovering/Resolving]
  - Status epilepticus [Recovering/Resolving]
  - Electrocardiogram QT prolonged [Recovering/Resolving]
  - Encephalopathy [Recovering/Resolving]
  - Mucosal dryness [Unknown]
